FAERS Safety Report 4290198-0 (Version None)
Quarter: 2004Q1

REPORT INFORMATION
  Report Type: 
  Country: None (occurrence: None)
  Receive Date: 20040209
  Receipt Date: 20040127
  Transmission Date: 20041129
  Serious: Yes (Hospitalization, Other)
  Sender: FDA-Public Use
  Company Number: 2003123841

PATIENT
  Age: 62 Year
  Sex: Male
  Weight: 106.5953 kg

DRUGS (9)
  1. ZOLOFT [Suspect]
     Indication: BIPOLAR I DISORDER
     Dosage: (DAILY), ORAL
     Route: 048
     Dates: start: 20030613
  2. DILANTIN [Suspect]
     Indication: CONVULSION
     Dates: start: 20030401
  3. AMIODARONE HCL [Concomitant]
  4. AMLODIPINE BESYLATE [Concomitant]
  5. ATORVASTATIN CALCIUM [Concomitant]
  6. ACETYLSALICYLIC ACID SRT [Concomitant]
  7. CLOPIDOGREL SULFATE (CLOPIODGREL SULFATE) [Concomitant]
  8. ISOSORBIDE DINITRATE [Concomitant]
  9. RAMIPRIL [Concomitant]

REACTIONS (6)
  - CEREBROVASCULAR ACCIDENT [None]
  - CONDITION AGGRAVATED [None]
  - CONVULSION [None]
  - DRUG INEFFECTIVE [None]
  - DRUG LEVEL FLUCTUATING [None]
  - TREATMENT NONCOMPLIANCE [None]
